FAERS Safety Report 13137178 (Version 5)
Quarter: 2017Q4

REPORT INFORMATION
  Report Type: Report from Study
  Country: AT (occurrence: AT)
  Receive Date: 20170123
  Receipt Date: 20171221
  Transmission Date: 20180320
  Serious: Yes (Death, Hospitalization, Other)
  Sender: FDA-Public Use
  Company Number: AT-INCYTE CORPORATION-2016IN000436

PATIENT

DRUGS (6)
  1. JAKAVI [Suspect]
     Active Substance: RUXOLITINIB
     Dosage: 20 MG, UNK
     Route: 048
  2. JAKAVI [Suspect]
     Active Substance: RUXOLITINIB
     Dosage: 30 MG, QD
     Route: 048
     Dates: start: 20121031
  3. JAKAVI [Suspect]
     Active Substance: RUXOLITINIB
     Dosage: 20 MG, UNK
     Route: 048
     Dates: start: 2015
  4. JAKAVI [Suspect]
     Active Substance: RUXOLITINIB
     Dosage: 40 MG, UNK
     Route: 048
  5. JAKAVI [Suspect]
     Active Substance: RUXOLITINIB
     Dosage: 40 OT, QD
     Route: 048
     Dates: start: 20131217
  6. JAKAVI [Suspect]
     Active Substance: RUXOLITINIB
     Indication: MYELOFIBROSIS
     Dosage: 30 MG, UNK
     Route: 048
     Dates: start: 201202

REACTIONS (12)
  - Dyspnoea [Unknown]
  - Intra-abdominal haematoma [Recovered/Resolved]
  - Pyrexia [Recovered/Resolved]
  - Infection [Unknown]
  - Death [Fatal]
  - Acute myeloid leukaemia [Recovered/Resolved with Sequelae]
  - Myelofibrosis [Recovered/Resolved]
  - Pyrexia [Unknown]
  - Haematoma [Unknown]
  - Pericardial effusion [Unknown]
  - Retinal haemorrhage [Recovered/Resolved]
  - Ecchymosis [Recovered/Resolved with Sequelae]

NARRATIVE: CASE EVENT DATE: 20131217
